FAERS Safety Report 4485277-9 (Version None)
Quarter: 2004Q4

REPORT INFORMATION
  Report Type: 
  Country: None (occurrence: None)
  Receive Date: 20041026
  Receipt Date: 20041014
  Transmission Date: 20050328
  Serious: Yes (Other)
  Sender: FDA-Public Use
  Company Number: 200413212JP

PATIENT
  Age: 34 Year
  Sex: Female

DRUGS (2)
  1. TAXOTERE [Suspect]
     Indication: CERVIX CARCINOMA
     Route: 041
     Dates: start: 20040824, end: 20040921
  2. CARBOPLATIN [Suspect]
     Indication: CERVIX CARCINOMA
     Dosage: DOSE: AIC6
     Route: 041
     Dates: start: 20040824, end: 20040921

REACTIONS (1)
  - PULMONARY ARTERY THROMBOSIS [None]
